FAERS Safety Report 7021014-1 (Version None)
Quarter: 2010Q3

REPORT INFORMATION
  Report Type: 
  Country: None (occurrence: None)
  Receive Date: 20100929
  Receipt Date: 20100917
  Transmission Date: 20110219
  Serious: Yes (Other)
  Sender: FDA-Public Use
  Company Number: US-PFIZER INC-2010118943

PATIENT
  Sex: Female
  Weight: 68 kg

DRUGS (3)
  1. AROMASIN [Suspect]
     Indication: BREAST CANCER STAGE III
     Dosage: 25 MG, 1X/DAY
     Route: 048
     Dates: start: 20090101
  2. WELLBUTRIN [Concomitant]
     Dosage: 100 MG, 1X/DAY
  3. ZOLOFT [Concomitant]
     Dosage: 50 MG, 1X/DAY

REACTIONS (1)
  - BREAST RECONSTRUCTION [None]
